FAERS Safety Report 21581142 (Version 1)
Quarter: 2022Q4

REPORT INFORMATION
  Report Type: Spontaneous
  Country: US (occurrence: US)
  Receive Date: 20221111
  Receipt Date: 20221111
  Transmission Date: 20230112
  Serious: No
  Sender: FDA-Public Use
  Company Number: US-drreddys-SPO/USA/22/0156608

PATIENT
  Age: 53 Year
  Sex: Female

DRUGS (1)
  1. ZENATANE [Suspect]
     Active Substance: ISOTRETINOIN
     Indication: Product used for unknown indication
     Dosage: RMA ISSUE DATE: 04/MAY/2022 03:04:59 PM, 05/JULY/2022 01:16:17 PM, 07/AUGUST/2022 12:11:08 PM

REACTIONS (1)
  - Treatment noncompliance [Unknown]
